FAERS Safety Report 5191982-1 (Version None)
Quarter: 2006Q4

REPORT INFORMATION
  Report Type: 
  Country: None (occurrence: None)
  Receive Date: 20061227
  Receipt Date: 20061102
  Transmission Date: 20070319
  Serious: Yes (Other)
  Sender: FDA-Public Use
  Company Number: 2006GB01989

PATIENT
  Age: 37 Year
  Sex: Male

DRUGS (2)
  1. PROPOFOL [Suspect]
     Indication: CARDIOVERSION
     Route: 042
     Dates: start: 20060928, end: 20060928
  2. MIDAZOLAM HYDROCHLORIDE [Suspect]
     Indication: CARDIOVERSION
     Route: 042
     Dates: start: 20060928, end: 20060928

REACTIONS (2)
  - ABNORMAL BEHAVIOUR [None]
  - CONFUSIONAL STATE [None]
